FAERS Safety Report 8087347-5 (Version None)
Quarter: 2012Q1

REPORT INFORMATION
  Report Type: 
  Country: None (occurrence: None)
  Receive Date: 20120128
  Receipt Date: 20110524
  Transmission Date: 20120608
  Serious: No
  Sender: FDA-Public Use
  Company Number: US-ABBOTT-11P-163-0722215-00

PATIENT
  Age: 77 Year
  Sex: Female

DRUGS (5)
  1. IRON [Concomitant]
     Indication: ANAEMIA
     Dates: start: 20010101
  2. LIPITOR [Concomitant]
     Indication: BLOOD CHOLESTEROL INCREASED
     Route: 048
  3. PREMARIN [Concomitant]
     Indication: BONE DISORDER
     Route: 048
     Dates: start: 19880101
  4. FOSAMAX [Concomitant]
     Indication: BONE DISORDER
     Route: 048
  5. HUMIRA [Suspect]
     Indication: PSORIASIS
     Dates: start: 20101001, end: 20110516

REACTIONS (2)
  - PSORIASIS [None]
  - DRUG INEFFECTIVE [None]
